FAERS Safety Report 14216325 (Version 2)
Quarter: 2017Q4

REPORT INFORMATION
  Report Type: Spontaneous
  Country: US (occurrence: US)
  Receive Date: 20171122
  Receipt Date: 20171227
  Transmission Date: 20180321
  Serious: Yes (Other)
  Sender: FDA-Public Use
  Company Number: US-PFIZER INC-2017501378

PATIENT
  Age: 47 Year
  Sex: Female
  Weight: 50 kg

DRUGS (8)
  1. GENOTROPIN MQ [Suspect]
     Active Substance: SOMATROPIN
     Indication: GROWTH HORMONE DEFICIENCY
     Dosage: 0.6 MG, DAILY
     Dates: start: 2001, end: 201701
  2. GENOTROPIN MQ [Suspect]
     Active Substance: SOMATROPIN
     Dosage: 0.2 MG, WEEKLY (2-3 TIMES)
  3. VITAMIN D3 [Concomitant]
     Active Substance: CHOLECALCIFEROL
     Dosage: UNK
     Route: 048
  4. VITAMIN B COMPLEX [Concomitant]
     Active Substance: CYANOCOBALAMIN\DEXPANTHENOL\NIACINAMIDE\PYRIDOXINE HYDROCHLORIDE\RIBOFLAVIN 5^-PHOSPHATE SODIUM\THIAMINE HYDROCHLORIDE\VITAMIN B COMPLEX
     Dosage: 1 DF, DAILY
     Route: 048
  5. SYNTHROID [Concomitant]
     Active Substance: LEVOTHYROXINE SODIUM
     Indication: HYPOTHYROIDISM
     Dosage: 150 UG, CYCLIC [(1 TABLET DAILY, 6 DAYS/WEEK,MONDAY-SATURDAY)/(DAILY,SIX DAYS A WEEK)]
     Route: 048
  6. GENOTROPIN MQ [Suspect]
     Active Substance: SOMATROPIN
     Dosage: 0.6 MG, DAILY
     Route: 058
  7. SPIRONOLACTONE. [Concomitant]
     Active Substance: SPIRONOLACTONE
     Indication: BLOOD OESTROGEN DECREASED
     Dosage: 100 MG, UNK
     Route: 048
  8. SPIRONOLACTONE. [Concomitant]
     Active Substance: SPIRONOLACTONE
     Indication: JOINT SWELLING

REACTIONS (7)
  - Pituitary tumour benign [Unknown]
  - Skin wrinkling [Unknown]
  - Vertebral foraminal stenosis [Unknown]
  - White matter lesion [Unknown]
  - Pulmonary mass [Unknown]
  - Cortisol increased [Unknown]
  - Overweight [Unknown]

NARRATIVE: CASE EVENT DATE: 200807
